FAERS Safety Report 6069133-0 (Version None)
Quarter: 2009Q1

REPORT INFORMATION
  Report Type: 
  Country: None (occurrence: None)
  Receive Date: 20090206
  Receipt Date: 20090128
  Transmission Date: 20090719
  Serious: Yes (Other)
  Sender: FDA-Public Use
  Company Number: AU-ELI_LILLY_AND_COMPANY-AU200901004810

PATIENT

DRUGS (1)
  1. PROZAC [Suspect]
     Dosage: 60 MG, DAILY (1/D)
     Route: 064

REACTIONS (3)
  - DRUG EXPOSURE DURING PREGNANCY [None]
  - SEX DIFFERENTIATION ABNORMAL [None]
  - THROMBOCYTOPENIA NEONATAL [None]
